FAERS Safety Report 6151348-4 (Version None)
Quarter: 2009Q2

REPORT INFORMATION
  Report Type: 
  Country: None (occurrence: None)
  Receive Date: 20090410
  Receipt Date: 20090324
  Transmission Date: 20091009
  Serious: Yes (Death, Hospitalization)
  Sender: FDA-Public Use
  Company Number: JP-ASTRAZENECA-2009AP02509

PATIENT
  Age: 22497 Day
  Sex: Male

DRUGS (3)
  1. IRESSA [Suspect]
     Route: 048
     Dates: start: 20090101, end: 20090217
  2. CALSED [Suspect]
     Indication: NON-SMALL CELL LUNG CANCER
     Dates: start: 20090217, end: 20090219
  3. BARIUM SULPHATE [Concomitant]

REACTIONS (6)
  - DIARRHOEA [None]
  - LEUKOPENIA [None]
  - SEPSIS [None]
  - SEPTIC SHOCK [None]
  - STOMATITIS [None]
  - THROMBOCYTOPENIA [None]
